FAERS Safety Report 8190320-X (Version None)
Quarter: 2012Q1

REPORT INFORMATION
  Report Type: 
  Country: None (occurrence: None)
  Receive Date: 20120305
  Receipt Date: 20120227
  Transmission Date: 20120608
  Serious: Yes (Other)
  Sender: FDA-Public Use
  Company Number: 2012MA002648

PATIENT
  Age: 69 Year
  Sex: Female

DRUGS (6)
  1. PREDNISONE [Concomitant]
  2. CALCIUM CARBONATE [Concomitant]
  3. WARFARIN SODIUM [Suspect]
     Dosage: 3.5 MG;QD;
  4. NIFEDIPINE [Concomitant]
  5. MICONAZOLE NITRATE [Suspect]
     Indication: PRODUCT USED FOR UNKNOWN INDICATION
     Dosage: ;PO
     Route: 048
  6. NUELIN SR [Concomitant]

REACTIONS (3)
  - INTERNATIONAL NORMALISED RATIO INCREASED [None]
  - HAEMARTHROSIS [None]
  - DRUG INTERACTION [None]
